FAERS Safety Report 11258079 (Version 1)
Quarter: 2015Q2

REPORT INFORMATION
  Report Type: Spontaneous
  Country: US (occurrence: None)
  Receive Date: 20150617
  Receipt Date: 20150617
  Transmission Date: 20150821
  Serious: No
  Sender: FDA-Public Use
  Company Number: 2014TASUS000553

PATIENT
  Age: 50 Year
  Sex: Female
  Weight: 108.8 kg

DRUGS (6)
  1. POTASSIUM (POTASSIUM BICARBONATE, POTASSIUMC CHLORIDE) [Concomitant]
  2. XANAX [Concomitant]
     Active Substance: ALPRAZOLAM
  3. HETLIOZ [Suspect]
     Active Substance: TASIMELTEON
     Indication: CIRCADIAN RHYTHM SLEEP DISORDER
     Route: 048
  4. MULTIVITAMIN (VITAMINS NOS) [Concomitant]
     Active Substance: VITAMINS
  5. LASIX [Concomitant]
     Active Substance: FUROSEMIDE
  6. CYMBALTA [Concomitant]
     Active Substance: DULOXETINE HYDROCHLORIDE

REACTIONS (1)
  - Headache [None]

NARRATIVE: CASE EVENT DATE: 2014
